FAERS Safety Report 6492592-6 (Version None)
Quarter: 2009Q4

REPORT INFORMATION
  Report Type: 
  Country: None (occurrence: None)
  Receive Date: 20091211
  Receipt Date: 20091211
  Transmission Date: 20100525
  Serious: Yes (Other)
  Sender: FDA-Public Use
  Company Number: None

PATIENT
  Age: 56 Year
  Sex: Male
  Weight: 91.173 kg

DRUGS (1)
  1. CLINDAMYCIN [Suspect]
     Indication: TOOTH INFECTION
     Dosage: 1 3 X DAY ORAL
     Route: 048
     Dates: start: 20091031, end: 20091101

REACTIONS (2)
  - DIARRHOEA [None]
  - HAEMORRHOIDS [None]
